FAERS Safety Report 24449913 (Version 1)
Quarter: 2024Q4

REPORT INFORMATION
  Report Type: Spontaneous
  Country: DE (occurrence: DE)
  Receive Date: 20241017
  Receipt Date: 20241017
  Transmission Date: 20250114
  Serious: Yes (Life-Threatening, Hospitalization, Other)
  Sender: B BRAUN
  Company Number: DE-B.Braun Medical Inc.-2163189

PATIENT
  Age: 63 Year
  Sex: Male
  Weight: 92 kg

DRUGS (1)
  1. HEPARIN SODIUM IN DEXTROSE [Suspect]
     Active Substance: HEPARIN SODIUM

REACTIONS (4)
  - Product quality issue [Recovered/Resolved]
  - Post procedural haemorrhage [Recovered/Resolved]
  - Coagulation time prolonged [Recovered/Resolved]
  - Drug ineffective [Recovered/Resolved]
